FAERS Safety Report 23264619 (Version 1)
Quarter: 2023Q4

REPORT INFORMATION
  Report Type: Spontaneous
  Country: PR (occurrence: PR)
  Receive Date: 20231205
  Receipt Date: 20231205
  Transmission Date: 20240110
  Serious: Yes (Hospitalization)
  Sender: FDA-Public Use
  Company Number: PR-BRISTOL-MYERS SQUIBB COMPANY-2023-173023

PATIENT
  Age: 45 Year
  Sex: Female
  Weight: 80.74 kg

DRUGS (1)
  1. POMALYST [Suspect]
     Active Substance: POMALIDOMIDE
     Indication: Plasma cell myeloma
     Dosage: 21 DAYS AND 7 DAYS OFF
     Route: 048
     Dates: start: 20220625

REACTIONS (2)
  - Muscular weakness [Unknown]
  - Haemoglobin decreased [Unknown]
